FAERS Safety Report 20039607 (Version 1)
Quarter: 2021Q4

REPORT INFORMATION
  Report Type: Other
  Country: US (occurrence: None)
  Receive Date: 20211106
  Receipt Date: 20211106
  Transmission Date: 20220303
  Serious: Yes (Other)
  Sender: FDA-Public Use
  Company Number: US-ROCHE-2947034

PATIENT

DRUGS (1)
  1. ATEZOLIZUMAB [Suspect]
     Active Substance: ATEZOLIZUMAB
     Indication: Non-small cell lung cancer
     Route: 065

REACTIONS (9)
  - Cardiac arrest [Unknown]
  - Atrial fibrillation [Unknown]
  - Cardiac failure [Unknown]
  - Arrhythmia [Unknown]
  - Sinus node dysfunction [Unknown]
  - Myocarditis [Unknown]
  - Ventricular arrhythmia [Unknown]
  - Pericardial disease [Unknown]
  - Atrioventricular block [Unknown]
